FAERS Safety Report 4802388-6 (Version None)
Quarter: 2005Q4

REPORT INFORMATION
  Report Type: 
  Country: None (occurrence: None)
  Receive Date: 20051014
  Receipt Date: 20040930
  Transmission Date: 20060501
  Serious: Yes (Other)
  Sender: FDA-Public Use
  Company Number: 2004065251

PATIENT
  Age: 86 Year
  Sex: Male
  Weight: 100.6985 kg

DRUGS (16)
  1. NEURONTIN [Suspect]
     Indication: HERPES ZOSTER
     Dosage: 3600 MG (1200 MG, 3 IN 1 D), ORAL
     Route: 048
  2. NEURONTIN [Suspect]
     Indication: PAIN
     Dosage: 3600 MG (1200 MG, 3 IN 1 D), ORAL
     Route: 048
  3. ANTIHYPERTENSIVES (ANTIHYPERTENSIVES) [Suspect]
     Indication: HYPERTENSION
  4. OXYBUTYNIN [Concomitant]
  5. OMEPRAZOLE [Concomitant]
  6. CENTRUM (MINERALS NOS, VITAMINS NOS) [Concomitant]
  7. CALCIUM GLUCONATE [Concomitant]
  8. ACETAMINOPHEN [Concomitant]
  9. ALENDRONATE SODIUM [Concomitant]
  10. ATENOLOL [Concomitant]
  11. CLOPIDOGREL BISULFATE [Concomitant]
  12. WARFARIN SODIUM [Concomitant]
  13. PREDNISONE [Concomitant]
  14. AMLODIPINE BESYLATE [Concomitant]
  15. SERTRALINE HYDROCHLORIDE [Concomitant]
  16. DIAZEPAM [Concomitant]

REACTIONS (9)
  - ASTHENIA [None]
  - BLOOD PRESSURE ABNORMAL [None]
  - BODY TEMPERATURE INCREASED [None]
  - CHILLS [None]
  - DECREASED APPETITE [None]
  - DIFFICULTY IN WALKING [None]
  - MALAISE [None]
  - POST HERPETIC NEURALGIA [None]
  - WEIGHT DECREASED [None]
